FAERS Safety Report 15347910 (Version 1)
Quarter: 2018Q4

REPORT INFORMATION
  Report Type: Spontaneous
  Country: PT (occurrence: PT)
  Receive Date: 20180904
  Receipt Date: 20180904
  Transmission Date: 20190204
  Serious: Yes (Hospitalization)
  Sender: FDA-Public Use
  Company Number: IND-PT-009507513-1808PRT013002

PATIENT
  Age: 49 Year
  Sex: Male

DRUGS (5)
  1. ZITHROMAX [Suspect]
     Active Substance: AZITHROMYCIN DIHYDRATE
     Indication: UPPER RESPIRATORY TRACT INFECTION
     Route: 048
     Dates: start: 201407, end: 201407
  2. INDERAL [Concomitant]
     Active Substance: PROPRANOLOL HYDROCHLORIDE
     Indication: PANIC ATTACK
     Dosage: 20 MG, QD
     Route: 048
     Dates: end: 201407
  3. EXXIV 30 MG FILM-COATED TABLET [Suspect]
     Active Substance: ETORICOXIB
     Indication: UPPER RESPIRATORY TRACT INFECTION
     Dosage: 1 DF, QD
     Route: 048
     Dates: start: 201407, end: 201407
  4. CIPRALEX [Concomitant]
     Active Substance: ESCITALOPRAM OXALATE
     Indication: PANIC ATTACK
     Dosage: 10 MG, QD
     Route: 048
     Dates: end: 201407
  5. ALPRAZOLAM. [Concomitant]
     Active Substance: ALPRAZOLAM
     Indication: PANIC ATTACK
     Dosage: 2 MG, QD
     Route: 048
     Dates: end: 201407

REACTIONS (5)
  - Rash pruritic [Unknown]
  - Aspartate aminotransferase increased [Unknown]
  - Eosinophil count increased [Unknown]
  - Gamma-glutamyltransferase increased [Unknown]
  - Rash maculo-papular [Unknown]

NARRATIVE: CASE EVENT DATE: 20140707
